FAERS Safety Report 15730197 (Version 2)
Quarter: 2019Q3

REPORT INFORMATION
  Report Type: Report from Study
  Country: ES (occurrence: ES)
  Receive Date: 20181217
  Receipt Date: 20190822
  Transmission Date: 20191004
  Serious: Yes (Life-Threatening, Other)
  Sender: FDA-Public Use
  Company Number: ES-VERTEX PHARMACEUTICALS-2018-009681

PATIENT
  Age: 14 Year
  Sex: Female
  Weight: 45 kg

DRUGS (3)
  1. COLISTIN [Concomitant]
     Active Substance: COLISTIN
     Route: 055
  2. AZITHROMYCIN ANHYDROUS. [Concomitant]
     Active Substance: AZITHROMYCIN ANHYDROUS
  3. ORKAMBI [Suspect]
     Active Substance: IVACAFTOR\LUMACAFTOR
     Indication: CYSTIC FIBROSIS
     Dosage: 2 DOSAGE FORM, BID
     Route: 048
     Dates: start: 20170124

REACTIONS (3)
  - Depression [Unknown]
  - Suicide attempt [Unknown]
  - Anxiety [Unknown]

NARRATIVE: CASE EVENT DATE: 20171201
